FAERS Safety Report 10522121 (Version 5)
Quarter: 2015Q1

REPORT INFORMATION
  Report Type: Spontaneous
  Country: US (occurrence: US)
  Receive Date: 20141016
  Receipt Date: 20150127
  Transmission Date: 20150720
  Serious: No
  Sender: FDA-Public Use
  Company Number: US-PFIZER INC-2014284530

PATIENT
  Age: 71 Year
  Sex: Male
  Weight: 110 kg

DRUGS (14)
  1. VICODIN ES [Concomitant]
     Active Substance: ACETAMINOPHEN\HYDROCODONE BITARTRATE
     Indication: CANCER PAIN
     Dosage: 5 MG- 300 MG (1-2 PILLS PO Q 6 HR PRN)
  2. NEURONTIN [Concomitant]
     Active Substance: GABAPENTIN
     Indication: CANCER PAIN
  3. ASPIR-81 [Concomitant]
     Active Substance: ASPIRIN
     Dosage: 81 MG, 1X/DAY
     Route: 048
  4. IMODIUM [Concomitant]
     Active Substance: LOPERAMIDE HYDROCHLORIDE
  5. XALKORI [Suspect]
     Active Substance: CRIZOTINIB
     Indication: LUNG NEOPLASM MALIGNANT
     Dosage: 250 MG, 2X/DAY
     Route: 048
     Dates: start: 20140930
  6. VICODIN ES [Concomitant]
     Active Substance: ACETAMINOPHEN\HYDROCODONE BITARTRATE
     Indication: PAIN
     Dosage: UNK, [(HYDROCODONE BITARTRATE 5 MG, PARACETAMOL 300 MG) Q4H PRN] AS NEEDED
     Route: 048
  7. SIMVASTATIN. [Concomitant]
     Active Substance: SIMVASTATIN
     Dosage: UNK
  8. MIRTAZAPINE. [Concomitant]
     Active Substance: MIRTAZAPINE
     Dosage: 15 MG, 1X/DAY (QHS)
     Route: 048
  9. XALKORI [Suspect]
     Active Substance: CRIZOTINIB
     Dosage: 250 MG, 2X/DAY
     Dates: start: 20141001, end: 20141204
  10. TYLENOL [Concomitant]
     Active Substance: ACETAMINOPHEN
     Dosage: 650 MG, UNK (325 MG TABLET(S) TAKE 2 AS DIRECTED.)
     Route: 048
  11. IRON [Concomitant]
     Active Substance: IRON
     Dosage: UNK, 325(65) MG TABLET(S) TAKE 1 DAILY
     Route: 048
  12. PROCHLORPERAZINE MALEATE. [Concomitant]
     Active Substance: PROCHLORPERAZINE MALEATE
     Indication: NAUSEA
     Dosage: 10 MG, AS NEEDED (1 PO Q4-6H PRN )
     Route: 048
  13. LASIX [Concomitant]
     Active Substance: FUROSEMIDE
     Dosage: 20 MG, UNK AS DIRECTED.
     Route: 048
  14. FLONASE [Concomitant]
     Active Substance: FLUTICASONE PROPIONATE
     Dosage: 50 ?G, DAILY

REACTIONS (16)
  - Productive cough [Not Recovered/Not Resolved]
  - Nail discolouration [Recovering/Resolving]
  - Photopsia [Unknown]
  - Blood albumin decreased [Unknown]
  - Dyspnoea [Recovered/Resolved]
  - Hypoacusis [Unknown]
  - Lung neoplasm malignant [Unknown]
  - Nausea [Unknown]
  - Pleural effusion [Unknown]
  - Weight decreased [Recovering/Resolving]
  - Rash [Not Recovered/Not Resolved]
  - Ear congestion [Unknown]
  - Oedema peripheral [Recovering/Resolving]
  - Disease progression [Unknown]
  - Decreased appetite [Recovered/Resolved]
  - Fatigue [Unknown]

NARRATIVE: CASE EVENT DATE: 2014
